FAERS Safety Report 5155120-3 (Version None)
Quarter: 2006Q4

REPORT INFORMATION
  Report Type: 
  Country: None (occurrence: None)
  Receive Date: 20061121
  Receipt Date: 20061108
  Transmission Date: 20070319
  Serious: Yes (Other)
  Sender: FDA-Public Use
  Company Number: DE-ELI_LILLY_AND_COMPANY-DE200611002411

PATIENT
  Age: 75 Year
  Sex: Female

DRUGS (5)
  1. FORTEO [Suspect]
     Indication: OSTEOPOROSIS
     Dosage: UNK, DAILY (1/D)
     Route: 058
     Dates: start: 20061107
  2. BLOPRESS /GFR/ [Concomitant]
     Dosage: 8 MG, EACH MORNING
     Route: 048
  3. METFORMIN [Concomitant]
     Dosage: 850 MG, EACH MORNING
     Route: 048
  4. TAVOR [Concomitant]
     Dosage: 10 MG, EACH EVENING
     Route: 048
  5. OMEP [Concomitant]
     Dosage: 20 MG, EACH EVENING
     Route: 048

REACTIONS (3)
  - BLOOD PRESSURE DECREASED [None]
  - CIRCULATORY COLLAPSE [None]
  - HEART RATE INCREASED [None]
